FAERS Safety Report 5449450-5 (Version None)
Quarter: 2007Q3

REPORT INFORMATION
  Report Type: 
  Country: None (occurrence: None)
  Receive Date: 20070911
  Receipt Date: 20070903
  Transmission Date: 20080115
  Serious: Yes (Hospitalization)
  Sender: FDA-Public Use
  Company Number: FR-PFIZER INC-2007074544

PATIENT
  Sex: Male

DRUGS (6)
  1. TAHOR [Suspect]
     Indication: HYPERCHOLESTEROLAEMIA
     Route: 048
  2. PLAVIX [Suspect]
     Indication: ISCHAEMIC STROKE
     Route: 048
  3. COVERSYL [Suspect]
     Indication: HYPERTENSION
     Route: 048
  4. AUGMENTIN '125' [Suspect]
     Indication: CELLULITIS
     Route: 048
  5. LANTUS [Concomitant]
  6. HUMALOG [Concomitant]
     Dosage: TEXT:2 IU IN AM, 4 IU AT NOON, 6 IU IN PM

REACTIONS (3)
  - HAEMATOMA [None]
  - HAEMATURIA [None]
  - PYREXIA [None]
